FAERS Safety Report 12804054 (Version 1)
Quarter: 2016Q4

REPORT INFORMATION
  Report Type: Spontaneous
  Country: US (occurrence: US)
  Receive Date: 20161003
  Receipt Date: 20161003
  Transmission Date: 20170207
  Serious: Yes (Hospitalization)
  Sender: FDA-Public Use
  Company Number: US-SA-2016SA180007

PATIENT
  Age: 74 Year
  Sex: Female

DRUGS (7)
  1. LEVOTHYROXINE SODIUM. [Concomitant]
     Active Substance: LEVOTHYROXINE SODIUM
  2. ZINC GLUCONATE [Concomitant]
     Active Substance: ZINC GLUCONATE
  3. CALCIUM [Concomitant]
     Active Substance: CALCIUM
  4. PRALUENT [Suspect]
     Active Substance: ALIROCUMAB
     Indication: HYPERLIPIDAEMIA
     Route: 058
     Dates: start: 20160701
  5. VITAMIN D3 [Concomitant]
     Active Substance: CHOLECALCIFEROL
  6. ALIROCUMAB PREFILLED PEN [Concomitant]
     Active Substance: ALIROCUMAB
     Dates: start: 20160701
  7. ESTRADIOL. [Concomitant]
     Active Substance: ESTRADIOL

REACTIONS (1)
  - Neck surgery [Unknown]
